FAERS Safety Report 24914232 (Version 1)
Quarter: 2025Q1

REPORT INFORMATION
  Report Type: Spontaneous
  Country: US (occurrence: US)
  Receive Date: 20250202
  Receipt Date: 20250202
  Transmission Date: 20250408
  Serious: No
  Sender: ALKEM
  Company Number: US-ALKEM LABORATORIES LIMITED-US-ALKEM-2024-18696

PATIENT
  Sex: Female
  Weight: 87.075 kg

DRUGS (1)
  1. SILVER SULFADIAZINE [Suspect]
     Active Substance: SILVER SULFADIAZINE
     Indication: Radiation injury
     Route: 065
     Dates: start: 20240719

REACTIONS (1)
  - Drug ineffective for unapproved indication [Unknown]
